FAERS Safety Report 15425932 (Version 1)
Quarter: 2018Q3

REPORT INFORMATION
  Report Type: Spontaneous
  Country: US (occurrence: US)
  Receive Date: 20180925
  Receipt Date: 20180925
  Transmission Date: 20181010
  Serious: Yes (Other)
  Sender: FDA-Public Use
  Company Number: US-PFIZER INC-2018378827

PATIENT
  Sex: Female
  Weight: 64.86 kg

DRUGS (2)
  1. ALDACTONE [Suspect]
     Active Substance: SPIRONOLACTONE
     Indication: FLUID RETENTION
     Dosage: 200 MG, UNK
  2. ALDACTONE [Suspect]
     Active Substance: SPIRONOLACTONE
     Indication: HYPERALDOSTERONISM
     Dosage: 100 MG, 1X/DAY (4 TABLETS ONCE DAILY BY MOUTH)
     Route: 048

REACTIONS (5)
  - Weight increased [Recovered/Resolved]
  - Fatigue [Unknown]
  - Abdominal discomfort [Unknown]
  - Drug ineffective [Unknown]
  - Dyspnoea [Unknown]

NARRATIVE: CASE EVENT DATE: 1990
